FAERS Safety Report 6449323-5 (Version None)
Quarter: 2009Q4

REPORT INFORMATION
  Report Type: 
  Country: None (occurrence: None)
  Receive Date: 20091120
  Receipt Date: 20081109
  Transmission Date: 20100525
  Serious: Yes (Other)
  Sender: FDA-Public Use
  Company Number: US-AMGEN-QUU315900

PATIENT
  Sex: Female
  Weight: 87.6 kg

DRUGS (14)
  1. ENBREL [Suspect]
     Indication: RHEUMATOID ARTHRITIS
     Route: 058
     Dates: start: 20071218, end: 20081024
  2. INFLIXIMAB [Suspect]
     Indication: DRUG USE FOR UNKNOWN INDICATION
     Dates: start: 20030325, end: 20071013
  3. METHOTREXATE [Suspect]
     Indication: DRUG USE FOR UNKNOWN INDICATION
     Dates: start: 20030207
  4. ALBUTEROL [Concomitant]
     Dates: start: 20020101
  5. ASPIRIN [Concomitant]
     Dates: start: 20020101
  6. ATENOLOL AND CHLORTHALIDONE [Concomitant]
  7. CALCIUM WITH VITAMIN D [Concomitant]
     Dates: start: 20020101
  8. CARISOPRODOL [Concomitant]
     Dates: start: 20030213
  9. CELEXA [Concomitant]
     Dates: start: 20030701
  10. FOLIC ACID [Concomitant]
  11. ALENDRONATE SODIUM [Concomitant]
     Dates: start: 20060215
  12. ACETAMINOPHEN AND HYDROCODONE BITARTRATE [Concomitant]
     Dates: start: 20070111
  13. PRAMIPEXOLE DIHYDROCHLORIDE [Concomitant]
     Dates: start: 20060223
  14. PREDNISONE [Concomitant]
     Dates: start: 20020101

REACTIONS (1)
  - LUNG NEOPLASM MALIGNANT [None]
